FAERS Safety Report 10455013 (Version 3)
Quarter: 2014Q4

REPORT INFORMATION
  Report Type: Spontaneous
  Country: GB (occurrence: GB)
  Receive Date: 20140915
  Receipt Date: 20141218
  Transmission Date: 20150528
  Serious: Yes (Other)
  Sender: FDA-Public Use
  Company Number: GB-009507513-1409GBR006418

PATIENT
  Age: 24 Year
  Sex: Female

DRUGS (1)
  1. NEXPLANON [Suspect]
     Active Substance: ETONOGESTREL
     Dosage: UNK
     Route: 059
     Dates: start: 20110729, end: 20131105

REACTIONS (3)
  - Device breakage [Recovered/Resolved]
  - Device difficult to use [Recovered/Resolved]
  - Premenstrual syndrome [Unknown]

NARRATIVE: CASE EVENT DATE: 20131105
